FAERS Safety Report 7334443-3 (Version None)
Quarter: 2011Q1

REPORT INFORMATION
  Report Type: 
  Country: None (occurrence: None)
  Receive Date: 20110307
  Receipt Date: 20110302
  Transmission Date: 20110831
  Serious: Yes (Death)
  Sender: FDA-Public Use
  Company Number: PHHY2011US17461

PATIENT
  Sex: Female
  Weight: 42.177 kg

DRUGS (1)
  1. EXJADE [Suspect]
     Indication: APLASTIC ANAEMIA
     Dosage: 2000 MG, DAILY
     Route: 048
     Dates: start: 20090708

REACTIONS (1)
  - DEATH [None]
